FAERS Safety Report 5492968-X (Version None)
Quarter: 2007Q4

REPORT INFORMATION
  Report Type: 
  Country: None (occurrence: None)
  Receive Date: 20071023
  Receipt Date: 20071015
  Transmission Date: 20080405
  Serious: Yes (Other)
  Sender: FDA-Public Use
  Company Number: GB-BRISTOL-MYERS SQUIBB COMPANY-13947437

PATIENT
  Sex: Male

DRUGS (6)
  1. METFORMIN HCL [Suspect]
     Indication: DIABETES MELLITUS
     Route: 048
     Dates: start: 20050101
  2. ROSIGLITAZONE [Interacting]
     Indication: DIABETES MELLITUS
     Route: 048
     Dates: start: 20050101
  3. ADALAT [Concomitant]
     Route: 048
  4. LISINOPRIL [Concomitant]
     Route: 048
  5. SIMVASTATIN [Concomitant]
     Route: 048
  6. LEVOTHYROXINE SODIUM [Concomitant]
     Route: 048

REACTIONS (2)
  - DRUG INTERACTION [None]
  - VITAMIN B12 DEFICIENCY [None]
